FAERS Safety Report 24575793 (Version 1)
Quarter: 2024Q4

REPORT INFORMATION
  Report Type: Spontaneous
  Country: US (occurrence: None)
  Receive Date: 20241101
  Receipt Date: 20241101
  Transmission Date: 20250115
  Serious: Yes (Hospitalization)
  Sender: Public
  Company Number: None

PATIENT
  Age: 92 Year
  Sex: Female
  Weight: 58 kg

DRUGS (5)
  1. METOPROLOL SUCCINATE [Suspect]
     Active Substance: METOPROLOL SUCCINATE
     Indication: Hypertension
     Dosage: FREQUENCY : DAILY;?
     Route: 048
     Dates: start: 20241016, end: 20241101
  2. Atorvastatin 40 mg daily [Concomitant]
     Dates: start: 20231113
  3. Desipramine 25 mg daily [Concomitant]
     Dates: start: 20231113
  4. Pantoprazole 40 mg daily [Concomitant]
     Dates: start: 20231216
  5. Meloxicam 15 mg daily [Concomitant]
     Dates: start: 20240122

REACTIONS (3)
  - Mental status changes [None]
  - Hallucination, visual [None]
  - Amnesia [None]

NARRATIVE: CASE EVENT DATE: 20241101
